FAERS Safety Report 15336140 (Version 1)
Quarter: 2018Q3

REPORT INFORMATION
  Report Type: Spontaneous
  Country: US (occurrence: US)
  Receive Date: 20180830
  Receipt Date: 20180830
  Transmission Date: 20181010
  Serious: No
  Sender: FDA-Public Use
  Company Number: US-BAUSCH-BL-2018-023641

PATIENT
  Age: 81 Year
  Sex: Male

DRUGS (4)
  1. SILIQ [Suspect]
     Active Substance: BRODALUMAB
     Dosage: WEEK 2 DOSE
     Route: 058
     Dates: start: 20180720
  2. SILIQ [Suspect]
     Active Substance: BRODALUMAB
     Dosage: FIRST MAINTENANCE DOSE
     Route: 058
     Dates: start: 20180803, end: 201808
  3. SILIQ [Suspect]
     Active Substance: BRODALUMAB
     Dosage: WEEK 1 DOSE
     Route: 058
     Dates: start: 20180713
  4. SILIQ [Suspect]
     Active Substance: BRODALUMAB
     Indication: PRODUCT USED FOR UNKNOWN INDICATION
     Dosage: WEEK 0 DOSE IN OFFICE
     Route: 058
     Dates: start: 20180706

REACTIONS (2)
  - Musculoskeletal discomfort [Unknown]
  - Arthralgia [Unknown]

NARRATIVE: CASE EVENT DATE: 201807
